FAERS Safety Report 6917370-2 (Version None)
Quarter: 2010Q3

REPORT INFORMATION
  Report Type: 
  Country: None (occurrence: None)
  Receive Date: 20100810
  Receipt Date: 20100729
  Transmission Date: 20110219
  Serious: No
  Sender: FDA-Public Use
  Company Number: US-B.I. PHARMACEUTICALS,INC./RIDGEFIELD-2010-BP-08701BP

PATIENT
  Age: 72 Year
  Sex: Female

DRUGS (4)
  1. MICARDIS [Suspect]
     Indication: HYPERTENSION
     Dosage: 40 MG
     Route: 048
     Dates: start: 20100415
  2. LIPITOR [Concomitant]
     Indication: BLOOD CHOLESTEROL INCREASED
  3. TENORMIN [Concomitant]
     Indication: HYPERTENSION
  4. PREDNISONE [Concomitant]

REACTIONS (3)
  - ALOPECIA [None]
  - PRURITUS GENERALISED [None]
  - URINARY TRACT INFECTION [None]
